FAERS Safety Report 11149498 (Version 1)
Quarter: 2015Q2

REPORT INFORMATION
  Report Type: Report from Study
  Country: FR (occurrence: FR)
  Receive Date: 20150529
  Receipt Date: 20150529
  Transmission Date: 20150821
  Serious: Yes (Hospitalization)
  Sender: FDA-Public Use
  Company Number: FR-B.I. PHARMACEUTICALS,INC./RIDGEFIELD-2013-BI-40275II

PATIENT
  Age: 71 Year
  Sex: Female

DRUGS (7)
  1. LECANIDIPINE [Concomitant]
     Indication: HYPERTENSION
     Route: 065
  2. EUPANTOL [Concomitant]
     Active Substance: PANTOPRAZOLE SODIUM
     Indication: HYPERTENSION
     Route: 065
  3. SPIRONOLACTONE. [Concomitant]
     Active Substance: SPIRONOLACTONE
     Indication: HYPERTENSION
     Route: 065
  4. FUROSEMIDE. [Concomitant]
     Active Substance: FUROSEMIDE
     Indication: HYPERTENSION
     Route: 065
  5. BIBF 1120 [Suspect]
     Active Substance: NINTEDANIB
     Indication: OVARIAN CANCER
     Dosage: 400 MG
     Route: 048
     Dates: start: 20131113, end: 20131115
  6. CARBOPLATIN. [Concomitant]
     Active Substance: CARBOPLATIN
     Indication: OVARIAN CANCER
     Dosage: 355 MG
     Route: 042
     Dates: start: 20131112, end: 20131112
  7. PACLITAXEL. [Concomitant]
     Active Substance: PACLITAXEL
     Indication: OVARIAN CANCER
     Dosage: ROUTE:INJECTION FOR INFUSION; DOSE PER APPLICATION AND DAILY DOSE: 260MG/M^2
     Route: 042
     Dates: start: 20131112, end: 20131112

REACTIONS (2)
  - Pulmonary embolism [Recovered/Resolved]
  - Subileus [Recovered/Resolved]

NARRATIVE: CASE EVENT DATE: 20131114
